FAERS Safety Report 4589141-6 (Version None)
Quarter: 2005Q1

REPORT INFORMATION
  Report Type: 
  Country: None (occurrence: None)
  Receive Date: 20050125
  Receipt Date: 20041124
  Transmission Date: 20050727
  Serious: No
  Sender: FDA-Public Use
  Company Number: USA040771511

PATIENT
  Age: 79 Year
  Sex: Female
  Weight: 50 kg

DRUGS (12)
  1. FORTEO [Suspect]
     Indication: OSTEOPOROSIS
     Dates: start: 20040501
  2. DARVOCET-N 100 [Concomitant]
  3. CELEBREX [Concomitant]
  4. PROTONIX [Concomitant]
  5. ZYRTEC [Concomitant]
  6. SYNTHROID (LEVOTHYROXINE SODIUIM) [Concomitant]
  7. ZOLOFT [Concomitant]
  8. XANAX (ALPRAZOLAM DUM) [Concomitant]
  9. FLONASE [Concomitant]
  10. MIACALCIN [Concomitant]
  11. OSCAL (CALCIUM CARBONATE) [Concomitant]
  12. NEURONTIN [Concomitant]

REACTIONS (4)
  - FEELING ABNORMAL [None]
  - MUSCLE SPASMS [None]
  - MYALGIA [None]
  - OEDEMA PERIPHERAL [None]
